FAERS Safety Report 5316792-3 (Version None)
Quarter: 2007Q2

REPORT INFORMATION
  Report Type: 
  Country: None (occurrence: None)
  Receive Date: 20070501
  Receipt Date: 20070501
  Transmission Date: 20071010
  Serious: Yes (Other)
  Sender: FDA-Public Use
  Company Number: None

PATIENT
  Age: 47 Year
  Sex: Female
  Weight: 70.3075 kg

DRUGS (2)
  1. ZELNORM [Suspect]
     Indication: CONSTIPATION
     Dosage: 1 PILL 2
     Dates: start: 20050501, end: 20070301
  2. ZELNORM [Suspect]
     Indication: IRRITABLE BOWEL SYNDROME
     Dosage: 1 PILL 2
     Dates: start: 20050501, end: 20070301

REACTIONS (5)
  - ASTHENIA [None]
  - DIZZINESS [None]
  - DYSPNOEA [None]
  - GAIT DISTURBANCE [None]
  - SPEECH DISORDER [None]
